FAERS Safety Report 5837361-2 (Version None)
Quarter: 2008Q3

REPORT INFORMATION
  Report Type: 
  Country: None (occurrence: None)
  Receive Date: 20080807
  Receipt Date: 20080801
  Transmission Date: 20090109
  Serious: Yes (Hospitalization)
  Sender: FDA-Public Use
  Company Number: US-ELI_LILLY_AND_COMPANY-US200804005148

PATIENT
  Age: 66 Year
  Sex: Male

DRUGS (11)
  1. BYETTA [Suspect]
     Indication: TYPE 2 DIABETES MELLITUS
     Dosage: 5 UG, UNKNOWN
     Dates: start: 20071001, end: 20071101
  2. BYETTA [Suspect]
     Dosage: 10 UG, 2/D
     Route: 058
     Dates: start: 20071101, end: 20080401
  3. BYETTA [Suspect]
     Dosage: 10 UG, OTHER
     Route: 058
     Dates: start: 20080425, end: 20080426
  4. ASPIRIN [Concomitant]
     Indication: CARDIOVASCULAR DISORDER
     Dosage: 81 MG, UNK
     Route: 048
     Dates: start: 20030101
  5. CENTRUM [Concomitant]
     Indication: PROPHYLAXIS
     Dosage: UNK, UNK
     Route: 048
     Dates: start: 20030101
  6. DEMADEX [Concomitant]
     Indication: CARDIOVASCULAR DISORDER
     Dosage: UNK, UNK
     Route: 048
     Dates: start: 20050101
  7. FOLTX [Concomitant]
     Indication: CARDIOVASCULAR DISORDER
     Route: 048
     Dates: start: 20050101
  8. COREG [Concomitant]
     Indication: CARDIOVASCULAR DISORDER
     Dosage: 25 MG, 2/D
     Route: 048
     Dates: start: 20050101, end: 20080401
  9. INSPRA [Concomitant]
     Indication: CARDIOVASCULAR DISORDER
     Dosage: 25 MG, UNK
     Dates: start: 20070101
  10. ALLEGRA [Concomitant]
     Indication: RHINITIS
     Dosage: 180 MG, UNK
     Route: 048
     Dates: start: 20070101
  11. ANDROGEL [Concomitant]
     Indication: HORMONE REPLACEMENT THERAPY
     Dosage: 5 G, UNK
     Route: 061
     Dates: start: 20071101

REACTIONS (1)
  - THYROIDITIS [None]
